FAERS Safety Report 7636210-X (Version None)
Quarter: 2011Q3

REPORT INFORMATION
  Report Type: 
  Country: None (occurrence: None)
  Receive Date: 20110726
  Receipt Date: 20110713
  Transmission Date: 20111222
  Serious: Yes (Hospitalization, Other)
  Sender: FDA-Public Use
  Company Number: US-JNJFOC-20110708851

PATIENT
  Sex: Male
  Weight: 82.9 kg

DRUGS (10)
  1. LACTULOSE [Concomitant]
     Route: 065
  2. FERROUS SULFATE TAB [Concomitant]
     Route: 065
  3. PRAVASTATIN [Concomitant]
     Route: 065
  4. DOXORUBICIN HCL [Suspect]
     Indication: TRANSITIONAL CELL CARCINOMA
     Route: 042
  5. GEMCITABINE [Suspect]
     Indication: TRANSITIONAL CELL CARCINOMA
     Route: 065
  6. METOPROLOL TARTRATE [Concomitant]
     Route: 065
  7. TAMSULOSIN HCL [Concomitant]
     Route: 065
  8. HYDROCODONE BITARTRATE [Concomitant]
     Route: 065
  9. BORTEZOMIB [Suspect]
     Indication: TRANSITIONAL CELL CARCINOMA
     Route: 042
     Dates: start: 20110614
  10. MULTI-VITAMINS [Concomitant]
     Route: 065

REACTIONS (4)
  - HAEMOGLOBIN DECREASED [None]
  - PLATELET COUNT DECREASED [None]
  - URINARY BLADDER HAEMORRHAGE [None]
  - WHITE BLOOD CELL COUNT ABNORMAL [None]
